FAERS Safety Report 5308365-3 (Version None)
Quarter: 2007Q2

REPORT INFORMATION
  Report Type: 
  Country: None (occurrence: None)
  Receive Date: 20070423
  Receipt Date: 20070410
  Transmission Date: 20071010
  Serious: Yes (Hospitalization)
  Sender: FDA-Public Use
  Company Number: 2007BI006394

PATIENT
  Age: 45 Year
  Sex: Female

DRUGS (14)
  1. AVONEX [Suspect]
     Indication: MULTIPLE SCLEROSIS
     Dosage: 30 UG; QW; IM
     Route: 030
     Dates: start: 20061101
  2. ADVAIR DISKUS 100/50 [Concomitant]
  3. CRESTOR [Concomitant]
  4. NEXIUM [Concomitant]
  5. LEXAPRO [Concomitant]
  6. TRAMADOL HCL [Concomitant]
  7. LOPRESSOR [Concomitant]
  8. DITROPAN PATCH [Concomitant]
  9. MOTRIL [Concomitant]
  10. FLEXERIL [Concomitant]
  11. NEURONTIN [Concomitant]
  12. TRAZODONE HCL [Concomitant]
  13. LIDODERM [Concomitant]
  14. AMANTADINE HCL [Concomitant]

REACTIONS (5)
  - BENIGN NEOPLASM OF PINEAL GLAND [None]
  - DEPRESSION [None]
  - INSOMNIA [None]
  - MULTIPLE SCLEROSIS [None]
  - URINARY INCONTINENCE [None]
